FAERS Safety Report 10012930 (Version 1)
Quarter: 2014Q1

REPORT INFORMATION
  Report Type: Spontaneous
  Country: US (occurrence: US)
  Receive Date: 20140314
  Receipt Date: 20140314
  Transmission Date: 20141002
  Serious: Yes (Other)
  Sender: FDA-Public Use
  Company Number: US-FRI-1000064596

PATIENT
  Age: 45 Year
  Sex: Female

DRUGS (4)
  1. SAPHRIS [Suspect]
     Indication: SCHIZOPHRENIA
     Route: 060
     Dates: start: 2013
  2. GABAPENTIN [Concomitant]
  3. HEART ARRHYTHMIA MEDICATIONS NOS [Concomitant]
     Indication: ARRHYTHMIA
  4. DIABETES MEDICATIONS NOS [Concomitant]
     Indication: DIABETES MELLITUS

REACTIONS (7)
  - Convulsion [Not Recovered/Not Resolved]
  - Electrocardiogram QT prolonged [Not Recovered/Not Resolved]
  - Weight decreased [Not Recovered/Not Resolved]
  - Stomatitis [Not Recovered/Not Resolved]
  - Tongue ulceration [Not Recovered/Not Resolved]
  - Glossitis [Not Recovered/Not Resolved]
  - Decreased appetite [Not Recovered/Not Resolved]
